FAERS Safety Report 6184675-5 (Version None)
Quarter: 2009Q2

REPORT INFORMATION
  Report Type: 
  Country: None (occurrence: None)
  Receive Date: 20090508
  Receipt Date: 20090501
  Transmission Date: 20091009
  Serious: Yes (Hospitalization)
  Sender: FDA-Public Use
  Company Number: JP-TEVA-193731ISR

PATIENT
  Sex: Female

DRUGS (5)
  1. FOLINIC ACID [Suspect]
     Indication: COLORECTAL CANCER
     Dates: start: 20080722
  2. FLUOROURACIL [Suspect]
     Route: 040
     Dates: start: 20080722
  3. FLUOROURACIL [Suspect]
     Route: 041
     Dates: start: 20080722
  4. IRINOTECAN HYDROCHLORIDE [Suspect]
     Indication: COLORECTAL CANCER
     Dates: start: 20080722
  5. SUNITINIB MALATE [Suspect]
     Indication: COLORECTAL CANCER
     Route: 048
     Dates: start: 20080722

REACTIONS (1)
  - ABDOMINAL DISTENSION [None]
